FAERS Safety Report 19659591 (Version 2)
Quarter: 2021Q3

REPORT INFORMATION
  Report Type: Spontaneous
  Country: US (occurrence: US)
  Receive Date: 20210805
  Receipt Date: 20210929
  Transmission Date: 20211014
  Serious: Yes (Other)
  Sender: FDA-Public Use
  Company Number: US-JNJFOC-20210757298

PATIENT
  Sex: Male

DRUGS (1)
  1. NEUTROGENA BEACH DEFENSE WATER PLUS SUN PROTECTION SUNSCREEN BROAD SPECTRUM SPF 50 [Suspect]
     Active Substance: AVOBENZONE\HOMOSALATE\OCTISALATE\OCTOCRYLENE
     Indication: BASAL CELL CARCINOMA
     Dosage: SPRAYS HIS WHOLE BODY, BUT THEN SPRAYS SOME IN THE HAND TO COVER THE FACE.
     Route: 061
     Dates: start: 20210326

REACTIONS (1)
  - Basal cell carcinoma [Unknown]
